FAERS Safety Report 13926490 (Version 1)
Quarter: 2017Q3

REPORT INFORMATION
  Report Type: Spontaneous
  Country: US (occurrence: None)
  Receive Date: 20170831
  Receipt Date: 20170831
  Transmission Date: 20171127
  Serious: Yes (Hospitalization)
  Sender: FDA-Public Use
  Company Number: None

PATIENT
  Age: 48 Year
  Sex: Male
  Weight: 85 kg

DRUGS (1)
  1. ERBITUX [Suspect]
     Active Substance: CETUXIMAB
     Dates: end: 20170717

REACTIONS (2)
  - Decreased appetite [None]
  - Hypophagia [None]

NARRATIVE: CASE EVENT DATE: 20170718
